FAERS Safety Report 5418627-7 (Version None)
Quarter: 2007Q3

REPORT INFORMATION
  Report Type: 
  Country: None (occurrence: None)
  Receive Date: 20070817
  Receipt Date: 20070807
  Transmission Date: 20080115
  Serious: Yes (Hospitalization, Disabling, Other)
  Sender: FDA-Public Use
  Company Number: US-PFIZER INC-2006051129

PATIENT
  Sex: Female

DRUGS (2)
  1. LIPITOR [Suspect]
     Indication: BLOOD CHOLESTEROL
     Route: 048
     Dates: start: 20030101, end: 20060404
  2. LOVASTATIN [Concomitant]
     Route: 048
     Dates: end: 20060404

REACTIONS (10)
  - ABASIA [None]
  - APATHY [None]
  - ARTHRALGIA [None]
  - ARTHRITIS [None]
  - DEMENTIA [None]
  - FATIGUE [None]
  - MUSCULAR WEAKNESS [None]
  - MYALGIA [None]
  - PAIN IN EXTREMITY [None]
  - PAIN OF SKIN [None]
